FAERS Safety Report 26063483 (Version 1)
Quarter: 2025Q4

REPORT INFORMATION
  Report Type: Spontaneous
  Country: US (occurrence: US)
  Receive Date: 20251119
  Receipt Date: 20251119
  Transmission Date: 20260117
  Serious: Yes (Other)
  Sender: NOVARTIS
  Company Number: US-002147023-NVSC2025US174815

PATIENT

DRUGS (1)
  1. SIMULECT [Suspect]
     Active Substance: BASILIXIMAB
     Indication: Product used for unknown indication
     Dosage: UNK
     Route: 065

REACTIONS (7)
  - Respiratory distress [Unknown]
  - Type 1 diabetes mellitus [Unknown]
  - Oxygen saturation decreased [Unknown]
  - Hypertension [Unknown]
  - Muscular weakness [Unknown]
  - Arthralgia [Unknown]
  - Gait inability [Unknown]
